FAERS Safety Report 10355082 (Version 2)
Quarter: 2014Q3

REPORT INFORMATION
  Report Type: Spontaneous
  Country: JP (occurrence: JP)
  Receive Date: 20140731
  Receipt Date: 20140814
  Transmission Date: 20150326
  Serious: No
  Sender: FDA-Public Use
  Company Number: JP-BRISTOL-MYERS SQUIBB COMPANY-21240312

PATIENT
  Age: 95 Year
  Sex: Female
  Weight: 44.3 kg

DRUGS (12)
  1. CRESTOR [Concomitant]
     Active Substance: ROSUVASTATIN CALCIUM
  2. ROZEREM [Concomitant]
     Active Substance: RAMELTEON
  3. THYRADIN S [Concomitant]
     Active Substance: LEVOTHYROXINE SODIUM
  4. LANSOPRAZOLE. [Concomitant]
     Active Substance: LANSOPRAZOLE
  5. ELIQUIS [Suspect]
     Active Substance: APIXABAN
     Indication: CEREBROVASCULAR ACCIDENT PROPHYLAXIS
     Dosage: TAB
     Route: 048
     Dates: start: 20140611, end: 20140620
  6. BROTIZOLAM [Concomitant]
     Active Substance: BROTIZOLAM
  7. CLOSTRIDIUM BUTYRICUM [Concomitant]
     Active Substance: CLOSTRIDIUM BUTYRICUM SPORES STRAIN M-55
  8. FUROSEMIDE. [Concomitant]
     Active Substance: FUROSEMIDE
  9. BISOPROLOL FUMARATE. [Concomitant]
     Active Substance: BISOPROLOL FUMARATE
  10. LOXOPROFEN SODIUM [Concomitant]
     Active Substance: LOXOPROFEN SODIUM
  11. BERIZYM [Concomitant]
     Active Substance: CELLULASE\DIASTASE\LIPASE
  12. LOXOPROFEN [Concomitant]
     Active Substance: LOXOPROFEN

REACTIONS (1)
  - Prothrombin time ratio increased [Recovering/Resolving]

NARRATIVE: CASE EVENT DATE: 20140620
